FAERS Safety Report 10902634 (Version 12)
Quarter: 2022Q1

REPORT INFORMATION
  Report Type: Spontaneous
  Country: GB (occurrence: GB)
  Receive Date: 20150310
  Receipt Date: 20220317
  Transmission Date: 20220423
  Serious: Yes (Life-Threatening, Hospitalization, Other)
  Sender: FDA-Public Use
  Company Number: PHHY2015GB024815

PATIENT
  Age: 29 Year
  Sex: Female

DRUGS (14)
  1. CODEINE PHOSPHATE [Suspect]
     Active Substance: CODEINE PHOSPHATE
     Indication: Pelvic pain
     Dosage: 4 MG, QD
     Route: 048
  2. CODEINE PHOSPHATE [Suspect]
     Active Substance: CODEINE PHOSPHATE
     Dosage: UNK, QID
     Route: 048
  3. CODEINE PHOSPHATE [Suspect]
     Active Substance: CODEINE PHOSPHATE
     Dosage: 16 MG, QD
     Route: 048
  4. ACETAMINOPHEN [Suspect]
     Active Substance: ACETAMINOPHEN
     Indication: Pelvic pain
     Dosage: 4 MG, QID (FOUR TIMES A DAY)
     Route: 048
  5. ACETAMINOPHEN [Suspect]
     Active Substance: ACETAMINOPHEN
     Dosage: 4 MG, QD (ONCE A DAY)
     Route: 048
  6. ACETAMINOPHEN [Suspect]
     Active Substance: ACETAMINOPHEN
     Dosage: 16 MG, QD (UPTO 4 DOSES PER DAY)
     Route: 048
  7. ACETAMINOPHEN [Suspect]
     Active Substance: ACETAMINOPHEN
     Dosage: UNK
     Route: 048
  8. COCODAMOL [Suspect]
     Active Substance: ACETAMINOPHEN\CODEINE PHOSPHATE
     Indication: Pelvic pain
     Dosage: 4 MG, QD
     Route: 048
  9. COCODAMOL [Suspect]
     Active Substance: ACETAMINOPHEN\CODEINE PHOSPHATE
     Indication: Pelvic girdle pain
     Dosage: 16 MG, QD (4, QID, GESTATION PERIOD: 2 (TRIMESTER)
     Route: 048
  10. COCODAMOL [Suspect]
     Active Substance: ACETAMINOPHEN\CODEINE PHOSPHATE
     Dosage: UNK (SECOND TRIMESTER)
     Route: 048
  11. CEPHRADINE [Concomitant]
     Active Substance: CEPHRADINE
     Indication: Product used for unknown indication
     Dosage: UNK
     Route: 065
  12. ENOXAPARIN [Concomitant]
     Active Substance: ENOXAPARIN
     Indication: Product used for unknown indication
     Dosage: UNK
     Route: 065
  13. FLUOXETINE [Concomitant]
     Active Substance: FLUOXETINE HYDROCHLORIDE
     Indication: Product used for unknown indication
     Dosage: UNK
     Route: 065
  14. METRONIDAZOLE [Concomitant]
     Active Substance: METRONIDAZOLE
     Indication: Pyelonephritis
     Dosage: UNK
     Route: 065

REACTIONS (18)
  - Crying [Unknown]
  - Uterine hypertonus [Unknown]
  - Premature labour [Unknown]
  - Fear [Unknown]
  - Asthenia [Unknown]
  - Asthenopia [Unknown]
  - Feeling guilty [Unknown]
  - Liver disorder [Recovered/Resolved]
  - Hepatotoxicity [Recovered/Resolved with Sequelae]
  - Depressed level of consciousness [Unknown]
  - Consciousness fluctuating [Unknown]
  - Fear of death [Unknown]
  - Hepatic failure [Recovered/Resolved]
  - Live birth [Unknown]
  - Malaise [Recovered/Resolved]
  - Maternal exposure during pregnancy [Recovered/Resolved]
  - Exposure during pregnancy [Recovered/Resolved]
  - Accidental overdose [Recovered/Resolved]
